FAERS Safety Report 21845377 (Version 2)
Quarter: 2023Q1

REPORT INFORMATION
  Report Type: Spontaneous
  Country: US (occurrence: US)
  Receive Date: 20230111
  Receipt Date: 20230309
  Transmission Date: 20230417
  Serious: No
  Sender: FDA-Public Use
  Company Number: US-ABBVIE-4230403

PATIENT
  Age: 71 Year
  Sex: Male
  Weight: 4.394 kg

DRUGS (18)
  1. DUOPA [Suspect]
     Active Substance: CARBIDOPA\LEVODOPA
     Indication: Parkinson^s disease
     Route: 050
     Dates: start: 202207
  2. DUOPA [Suspect]
     Active Substance: CARBIDOPA\LEVODOPA
  3. ESCITALOPRAM [Concomitant]
     Active Substance: ESCITALOPRAM OXALATE
     Indication: Depression
  4. DUTASTERIDE [Concomitant]
     Active Substance: DUTASTERIDE
     Indication: Parkinson^s disease
  5. CLOPIDOGREL [Concomitant]
     Active Substance: CLOPIDOGREL BISULFATE
     Indication: Cardiac disorder
  6. ATOMOXETINE [Concomitant]
     Active Substance: ATOMOXETINE
     Indication: Parkinson^s disease
  7. ASPIRIN [Concomitant]
     Active Substance: ASPIRIN
     Indication: Cardiac disorder
  8. ATORVASTATIN [Concomitant]
     Active Substance: ATORVASTATIN
     Indication: Cardiac disorder
  9. LOSARTAN [Concomitant]
     Active Substance: LOSARTAN
     Indication: Hypertension
  10. RIVASTIGMINE [Concomitant]
     Active Substance: RIVASTIGMINE
     Indication: Dementia
  11. METFORMIN [Concomitant]
     Active Substance: METFORMIN HYDROCHLORIDE
     Indication: Diabetes mellitus
  12. Carvidopa Levodopa [Concomitant]
     Indication: Parkinson^s disease
     Dosage: ER
  13. GABAPENTIN [Concomitant]
     Active Substance: GABAPENTIN
     Indication: Neuropathy peripheral
  14. ENTACAPONE [Concomitant]
     Active Substance: ENTACAPONE
     Indication: Supportive care
  15. DULCOLAX NOS [Concomitant]
     Active Substance: BISACODYL OR DOCUSATE SODIUM
     Indication: Laxative supportive care
  16. PANTOPRAZOLE [Concomitant]
     Active Substance: PANTOPRAZOLE
     Indication: Gastrooesophageal reflux disease
  17. TAMSULOSIN [Concomitant]
     Active Substance: TAMSULOSIN
     Indication: Parkinson^s disease
  18. AMANTADINE [Concomitant]
     Active Substance: AMANTADINE
     Indication: Parkinson^s disease

REACTIONS (2)
  - Stoma site discharge [Recovered/Resolved]
  - Device colour issue [Unknown]

NARRATIVE: CASE EVENT DATE: 20220901
